FAERS Safety Report 5917707-7 (Version None)
Quarter: 2008Q4

REPORT INFORMATION
  Report Type: 
  Country: None (occurrence: None)
  Receive Date: 20081009
  Receipt Date: 20080923
  Transmission Date: 20090506
  Serious: Yes (Death, Life-Threatening, Hospitalization, Other)
  Sender: FDA-Public Use
  Company Number: 2008PL000143

PATIENT
  Age: 22 Year
  Sex: Male

DRUGS (7)
  1. IMURAN [Suspect]
     Indication: COLITIS
     Dosage: 100 MG;QD;
     Dates: start: 20011201
  2. REMICADE [Suspect]
     Indication: COLITIS
     Dosage: 5 MG/KG;1X:IV
     Route: 042
     Dates: start: 20011222, end: 20011222
  3. LOVENOX [Suspect]
  4. ASACOL [Concomitant]
  5. LOW MOLECULAR WEIGHT [Concomitant]
  6. HEPARIN [Concomitant]
  7. STEROIDS (CORTICOSTEROIDS NOS) [Concomitant]

REACTIONS (34)
  - ACUTE SINUSITIS [None]
  - ALANINE AMINOTRANSFERASE INCREASED [None]
  - ANOREXIA [None]
  - ANTIPHOSPHOLIPID SYNDROME [None]
  - AQUEDUCTAL STENOSIS [None]
  - ASPARTATE AMINOTRANSFERASE INCREASED [None]
  - BLOOD ALKALINE PHOSPHATASE INCREASED [None]
  - BLOOD BILIRUBIN INCREASED [None]
  - BLOOD LACTATE DEHYDROGENASE INCREASED [None]
  - BLOOD LACTIC ACID INCREASED [None]
  - CATHETER SITE HAEMATOMA [None]
  - CENTRAL LINE INFECTION [None]
  - CHILLS [None]
  - EPISTAXIS [None]
  - FATIGUE [None]
  - GASTROINTESTINAL HAEMORRHAGE [None]
  - GRAFT VERSUS HOST DISEASE [None]
  - HAEMOGLOBIN DECREASED [None]
  - HEADACHE [None]
  - HEPATOMEGALY [None]
  - HYDROCEPHALUS [None]
  - HYPERTENSION [None]
  - INTRACRANIAL PRESSURE INCREASED [None]
  - METABOLIC DISORDER [None]
  - MIGRAINE [None]
  - MUCOSAL INFLAMMATION [None]
  - NEPHROLITHIASIS [None]
  - NEUTROPENIA [None]
  - NUCLEAR MAGNETIC RESONANCE IMAGING BRAIN ABNORMAL [None]
  - PLATELET COUNT DECREASED [None]
  - PULMONARY EMBOLISM [None]
  - RASH [None]
  - SPLENOMEGALY [None]
  - T-CELL LYMPHOMA [None]
